FAERS Safety Report 13096388 (Version 1)
Quarter: 2017Q1

REPORT INFORMATION
  Report Type: Spontaneous
  Country: US (occurrence: US)
  Receive Date: 20170106
  Receipt Date: 20170106
  Transmission Date: 20170428
  Serious: Yes (Hospitalization)
  Sender: FDA-Public Use
  Company Number: None

PATIENT
  Age: 64 Year
  Sex: Female
  Weight: 71.2 kg

DRUGS (1)
  1. CHLORPHENIRAMINE/DEXTROMETHORPHAN [Suspect]
     Active Substance: CHLORPHENIRAMINE\DEXTROMETHORPHAN
     Indication: NASOPHARYNGITIS
     Route: 048
     Dates: start: 20160904, end: 20160904

REACTIONS (2)
  - Mental status changes [None]
  - Hallucination [None]

NARRATIVE: CASE EVENT DATE: 20160904
